FAERS Safety Report 4341756-6 (Version None)
Quarter: 2004Q2

REPORT INFORMATION
  Report Type: 
  Country: None (occurrence: None)
  Receive Date: 20040415
  Receipt Date: 20040329
  Transmission Date: 20050107
  Serious: Yes (Other)
  Sender: FDA-Public Use
  Company Number: DE-JNJFOC-20031104779

PATIENT
  Age: 33 Year
  Sex: Female
  Weight: 61 kg

DRUGS (1)
  1. EVRA (NORELGESTROMIN/ETHINYL ESTRADIOL) [Suspect]
     Indication: CONTRACEPTION
     Dosage: 1 DOSE (S), 3 IN 4 WEEK, TRANSDERMAL
     Route: 062
     Dates: start: 20031101

REACTIONS (4)
  - GASTROINTESTINAL INFECTION [None]
  - HYPOKALAEMIA [None]
  - IRON DEFICIENCY [None]
  - SYNCOPE [None]
